FAERS Safety Report 23987275 (Version 1)
Quarter: 2024Q2

REPORT INFORMATION
  Report Type: Spontaneous
  Country: DE (occurrence: DE)
  Receive Date: 20240618
  Receipt Date: 20240618
  Transmission Date: 20240716
  Serious: Yes (Life-Threatening, Disabling, Congenital Anomaly)
  Sender: FDA-Public Use
  Company Number: DE-ANIPHARMA-2024-DE-000082

PATIENT
  Sex: Female

DRUGS (2)
  1. CANDESARTAN [Suspect]
     Active Substance: CANDESARTAN
     Indication: Product used for unknown indication
     Dosage: 8 MG DAILY
     Route: 050
  2. METHYLDOPA [Concomitant]
     Active Substance: METHYLDOPA

REACTIONS (9)
  - Neonatal anuria [Not Recovered/Not Resolved]
  - Muscle contracture [Not Recovered/Not Resolved]
  - Pulmonary hypoplasia [Not Recovered/Not Resolved]
  - Premature baby [Not Recovered/Not Resolved]
  - Isosthenuria [Not Recovered/Not Resolved]
  - Foetal malposition [Not Recovered/Not Resolved]
  - Pulmonary hypertension [Not Recovered/Not Resolved]
  - Renal impairment neonatal [Not Recovered/Not Resolved]
  - Foetal exposure during pregnancy [Not Recovered/Not Resolved]

NARRATIVE: CASE EVENT DATE: 20240506
